FAERS Safety Report 9798960 (Version 1)
Quarter: 2014Q1

REPORT INFORMATION
  Report Type: Spontaneous
  Country: FR (occurrence: FR)
  Receive Date: 20140106
  Receipt Date: 20140106
  Transmission Date: 20141002
  Serious: Yes (Hospitalization)
  Sender: FDA-Public Use
  Company Number: FR-B.I. PHARMACEUTICALS,INC./RIDGEFIELD-2014-BI-00132FF

PATIENT
  Age: 83 Year
  Sex: Female

DRUGS (10)
  1. PRADAXA [Suspect]
     Dosage: 150 MG
     Route: 048
     Dates: start: 20130923, end: 20131015
  2. DOLIPRANE [Concomitant]
     Dosage: 4 G
     Route: 048
  3. TARDYFERON 80 [Concomitant]
     Dosage: 160 MG
     Route: 048
  4. SEROPLEX 10MG [Concomitant]
     Dosage: 10 MG
     Route: 048
  5. TEMESTA 2.5MG [Concomitant]
     Dosage: 2.5 MG
     Route: 048
  6. KARDEGIC 75MG [Concomitant]
     Dosage: 75 MG
     Route: 048
  7. ZOPICLONE 7.5MG [Concomitant]
     Dosage: 7.5 MG
     Route: 048
  8. DOMPERIDONE [Concomitant]
     Dosage: 30 MG
     Route: 048
     Dates: start: 20131001, end: 20131003
  9. CONTRAMAL [Concomitant]
     Dosage: 800 MG
     Route: 048
     Dates: start: 20130930, end: 20131001
  10. CONTRAMAL [Concomitant]
     Dosage: 800 MG
     Route: 048
     Dates: start: 20130930, end: 20131001

REACTIONS (1)
  - Deep vein thrombosis [Recovered/Resolved]
